FAERS Safety Report 15093922 (Version 1)
Quarter: 2018Q2

REPORT INFORMATION
  Report Type: Report from Study
  Country: US (occurrence: US)
  Receive Date: 20180629
  Receipt Date: 20180629
  Transmission Date: 20180711
  Serious: Yes (Hospitalization, Other)
  Sender: FDA-Public Use
  Company Number: US-BRISTOL-MYERS SQUIBB COMPANY-BMS-2018-059435

PATIENT
  Age: 50 Year
  Sex: Female
  Weight: 163 kg

DRUGS (3)
  1. NIVOLUMAB [Suspect]
     Active Substance: NIVOLUMAB
     Indication: CHOLANGIOCARCINOMA
     Dosage: 3 MG/KG, UNK
     Route: 042
     Dates: start: 20180507, end: 20180522
  2. ENTINOSTAT [Suspect]
     Active Substance: ENTINOSTAT
     Indication: CHOLANGIOCARCINOMA
     Dosage: 3 MG, UNK
     Route: 048
     Dates: start: 20180507, end: 20180529
  3. IPILIMUMAB [Suspect]
     Active Substance: IPILIMUMAB
     Indication: CHOLANGIOCARCINOMA
     Dosage: 1 MG/KG, UNK
     Route: 042
     Dates: start: 20180507, end: 20180522

REACTIONS (4)
  - Abdominal pain [Recovered/Resolved]
  - Fatigue [Recovered/Resolved]
  - Hepatic infection [Recovered/Resolved]
  - Dehydration [Recovered/Resolved]

NARRATIVE: CASE EVENT DATE: 20180509
